FAERS Safety Report 12387982 (Version 1)
Quarter: 2016Q2

REPORT INFORMATION
  Report Type: Spontaneous
  Country: US (occurrence: None)
  Receive Date: 20160519
  Receipt Date: 20160519
  Transmission Date: 20160815
  Serious: Yes (Death)
  Sender: FDA-Public Use
  Company Number: None

PATIENT
  Age: 46 Year
  Sex: Female

DRUGS (2)
  1. PREDNISONE. [Suspect]
     Active Substance: PREDNISONE
     Indication: COLITIS ULCERATIVE
     Route: 048
     Dates: start: 20160124, end: 20160512
  2. REMICADE [Concomitant]
     Active Substance: INFLIXIMAB

REACTIONS (8)
  - Resuscitation [None]
  - Muscle strain [None]
  - Dialysis [None]
  - Arthralgia [None]
  - Blood lactic acid increased [None]
  - Hip fracture [None]
  - Pulmonary embolism [None]
  - Blood pressure inadequately controlled [None]

NARRATIVE: CASE EVENT DATE: 20160501
